FAERS Safety Report 8980257 (Version 2)
Quarter: 2013Q1

REPORT INFORMATION
  Report Type: Spontaneous
  Country: DE (occurrence: DE)
  Receive Date: 20121221
  Receipt Date: 20130116
  Transmission Date: 20140127
  Serious: Yes (Other)
  Sender: FDA-Public Use
  Company Number: DE-SANOFI-AVENTIS-2012SA091960

PATIENT
  Sex: 0

DRUGS (2)
  1. APIDRA [Suspect]
     Indication: DIABETES MELLITUS
     Route: 065
  2. INSULIN PUMP [Concomitant]
     Indication: DIABETES MELLITUS

REACTIONS (1)
  - Ketoacidosis [Unknown]
